FAERS Safety Report 7737852-3 (Version None)
Quarter: 2011Q3

REPORT INFORMATION
  Report Type: 
  Country: None (occurrence: None)
  Receive Date: 20110908
  Receipt Date: 20110830
  Transmission Date: 20111222
  Serious: Yes (Hospitalization, Other)
  Sender: FDA-Public Use
  Company Number: PHHO2011US12272

PATIENT
  Sex: Male
  Weight: 102 kg

DRUGS (10)
  1. NEXIUM [Suspect]
     Dosage: UNK
  2. IRON DEXTRAN [Concomitant]
     Dosage: 1025 MG, UNK
     Route: 042
     Dates: start: 20110827
  3. VALCYTE [Suspect]
     Dosage: 450 MG, QD
     Dates: start: 20110627
  4. CERTICAN [Suspect]
     Dosage: 0.75 MG, BID
     Route: 048
     Dates: start: 20110725, end: 20110829
  5. PREDNISONE [Suspect]
     Indication: RENAL TRANSPLANT
     Dosage: 15 MG, DAILY
     Route: 048
     Dates: start: 20110701, end: 20110713
  6. PREDNISONE [Suspect]
     Dosage: 5 MG, DAILY
     Route: 048
     Dates: start: 20110714
  7. IRON DEXTRAN [Concomitant]
     Dosage: 1000 MG, UNK
     Route: 042
     Dates: start: 20110629
  8. CERTICAN [Suspect]
     Indication: RENAL TRANSPLANT
     Dosage: 1.5 MG, BID
     Route: 048
     Dates: start: 20110627, end: 20110712
  9. PROGRAF [Suspect]
     Indication: RENAL TRANSPLANT
     Dosage: 2 MG, BID
     Route: 048
     Dates: start: 20110628
  10. IRON DEXTRAN [Concomitant]
     Dosage: 25 MG
     Route: 042
     Dates: start: 20110628

REACTIONS (3)
  - GASTRIC ANTRAL VASCULAR ECTASIA [None]
  - CONCOMITANT DISEASE PROGRESSION [None]
  - ANAEMIA POSTOPERATIVE [None]
